FAERS Safety Report 10363326 (Version 1)
Quarter: 2014Q1

REPORT INFORMATION
  Report Type: Spontaneous
  Country: US (occurrence: None)
  Receive Date: 20140306
  Receipt Date: 20140306
  Transmission Date: 20141002
  Serious: Yes (Hospitalization, Other)
  Sender: FDA-Public Use
  Company Number: 163-21880-13020839

PATIENT
  Age: 74 Year
  Sex: Female

DRUGS (4)
  1. REVLIMID [Suspect]
     Indication: PLASMA CELL MYELOMA
     Route: 048
     Dates: start: 201207
  2. LASIX (FUROSEMIDE) [Concomitant]
  3. PREDNISONE (PREDNISONE) [Concomitant]
  4. ALBUTEROL (SALBUTAMOL) [Concomitant]

REACTIONS (2)
  - Pneumonia [None]
  - Cardiac failure congestive [None]
